FAERS Safety Report 14477891 (Version 1)
Quarter: 2018Q1

REPORT INFORMATION
  Report Type: Report from Study
  Country: DE (occurrence: DE)
  Receive Date: 20180201
  Receipt Date: 20180201
  Transmission Date: 20180509
  Serious: Yes (Other)
  Sender: FDA-Public Use
  Company Number: DE-GLAXOSMITHKLINE-DE2018013524

PATIENT
  Age: 25 Year
  Sex: Male
  Weight: 75 kg

DRUGS (10)
  1. PEGINTERFERON BETA 1A [Concomitant]
     Indication: DEPRESSION
  2. TAVEGIL [Concomitant]
     Active Substance: CLEMASTINE FUMARATE
     Indication: PROPHYLAXIS
     Dosage: 2 MG, QD
     Route: 042
     Dates: start: 20170116, end: 20170120
  3. LEMTRADA [Suspect]
     Active Substance: ALEMTUZUMAB
     Indication: ENCEPHALOMYELITIS
     Dosage: 12 MG, QD
     Route: 041
     Dates: start: 20170116, end: 20170120
  4. LEMTRADA [Suspect]
     Active Substance: ALEMTUZUMAB
     Indication: MULTIPLE SCLEROSIS
  5. AERIUS [Concomitant]
     Active Substance: DESLORATADINE
     Indication: PROPHYLAXIS
     Dosage: 5 MG, QD
     Route: 048
     Dates: start: 20170115, end: 20170128
  6. RANITIDINE. [Concomitant]
     Active Substance: RANITIDINE
     Indication: PROPHYLAXIS
     Dosage: 50 MG, QD
     Route: 042
     Dates: start: 20170116, end: 20170120
  7. ACYCLOVIR. [Suspect]
     Active Substance: ACYCLOVIR
     Indication: PROPHYLAXIS
     Dosage: 400 MG
     Route: 048
     Dates: start: 20170116, end: 20170214
  8. PARACETAMOL [Concomitant]
     Active Substance: ACETAMINOPHEN
     Indication: PROPHYLAXIS
     Dosage: 1000 MG, QD
     Route: 048
     Dates: start: 20170116, end: 20170120
  9. PEGINTERFERON BETA 1A [Concomitant]
     Indication: FATIGUE
     Dosage: UNK
     Route: 058
     Dates: start: 20160525, end: 20161225
  10. URBASON [Concomitant]
     Active Substance: METHYLPREDNISOLONE
     Indication: PROPHYLAXIS
     Route: 042
     Dates: start: 20170116, end: 20170120

REACTIONS (4)
  - Thrombocytopenia [Recovered/Resolved]
  - Multiple sclerosis relapse [Unknown]
  - Leukopenia [Recovering/Resolving]
  - Blood thyroid stimulating hormone increased [Unknown]

NARRATIVE: CASE EVENT DATE: 20170220
